FAERS Safety Report 7250629-0 (Version None)
Quarter: 2011Q1

REPORT INFORMATION
  Report Type: 
  Country: None (occurrence: None)
  Receive Date: 20110119
  Receipt Date: 20110104
  Transmission Date: 20110831
  Serious: Yes (Other)
  Sender: FDA-Public Use
  Company Number: 2011-0034

PATIENT
  Sex: Female

DRUGS (2)
  1. DYSPORT [Suspect]
     Indication: OFF LABEL USE
     Dosage: 2000 UNITS (2000 UNITS,SINGLE CYCLE),INTRAMUSCULAR
     Route: 030
  2. DYSPORT [Suspect]
     Indication: MUSCLE SPASTICITY
     Dosage: 2000 UNITS (2000 UNITS,SINGLE CYCLE),INTRAMUSCULAR
     Route: 030

REACTIONS (4)
  - OVERDOSE [None]
  - MYASTHENIC SYNDROME [None]
  - NO THERAPEUTIC RESPONSE [None]
  - FATIGUE [None]
